FAERS Safety Report 8818741 (Version 2)
Quarter: 2015Q3

REPORT INFORMATION
  Report Type: Report from Study
  Country: US (occurrence: US)
  Receive Date: 20121001
  Receipt Date: 20150806
  Transmission Date: 20151125
  Serious: Yes (Death)
  Sender: FDA-Public Use
  Company Number: US-ROCHE-1129516

PATIENT
  Sex: Female

DRUGS (9)
  1. HERCEPTIN [Suspect]
     Active Substance: TRASTUZUMAB
     Indication: BREAST CANCER FEMALE
     Dosage: MAINTENANCE DOSE
     Route: 042
  2. LASIX [Concomitant]
     Active Substance: FUROSEMIDE
  3. TAXOTERE [Concomitant]
     Active Substance: DOCETAXEL
  4. ALDACTONE (UNITED STATES) [Concomitant]
  5. TAMOXIFEN [Concomitant]
     Active Substance: TAMOXIFEN
     Route: 065
  6. HERCEPTIN [Suspect]
     Active Substance: TRASTUZUMAB
     Indication: HAEMATOLOGICAL MALIGNANCY
     Dosage: LOADING DOSE
     Route: 042
     Dates: start: 19990501
  7. ZOLADEX [Concomitant]
     Active Substance: GOSERELIN ACETATE
     Route: 065
  8. AREDIA [Concomitant]
     Active Substance: PAMIDRONATE DISODIUM
     Route: 065
  9. XELODA [Suspect]
     Active Substance: CAPECITABINE
     Indication: PRODUCT USED FOR UNKNOWN INDICATION
     Route: 065

REACTIONS (8)
  - Palmar-plantar erythrodysaesthesia syndrome [Unknown]
  - Disease progression [Unknown]
  - Fatigue [Unknown]
  - Plantar erythema [Unknown]
  - Oedema peripheral [Unknown]
  - Death [Fatal]
  - Palmar erythema [Unknown]
  - Ascites [Unknown]
